FAERS Safety Report 5316772-8 (Version None)
Quarter: 2007Q2

REPORT INFORMATION
  Report Type: 
  Country: None (occurrence: None)
  Receive Date: 20070504
  Receipt Date: 20070424
  Transmission Date: 20071010
  Serious: Yes (Hospitalization)
  Sender: FDA-Public Use
  Company Number: DE-ABBOTT-07P-062-0366070-00

PATIENT
  Sex: Female
  Weight: 65 kg

DRUGS (4)
  1. HUMIRA [Suspect]
     Indication: PSORIASIS
     Route: 058
     Dates: start: 20061101
  2. INDOMETHACIN [Concomitant]
     Indication: PSORIASIS
     Route: 048
     Dates: start: 20061101
  3. XIMOVAN [Concomitant]
     Indication: SLEEP DISORDER
     Route: 048
     Dates: start: 20070414
  4. AMLODIPINE BESYLATE [Concomitant]
     Indication: HYPERTENSION
     Route: 048

REACTIONS (1)
  - HALLUCINATION, AUDITORY [None]
